FAERS Safety Report 13698752 (Version 1)
Quarter: 2017Q2

REPORT INFORMATION
  Report Type: Spontaneous
  Country: US (occurrence: US)
  Receive Date: 20170627
  Receipt Date: 20170627
  Transmission Date: 20170830
  Serious: No
  Sender: FDA-Public Use
  Company Number: None

PATIENT
  Age: 99 Year
  Sex: Female
  Weight: 59.4 kg

DRUGS (1)
  1. NIZORAL [Suspect]
     Active Substance: KETOCONAZOLE
     Indication: VULVOVAGINAL MYCOTIC INFECTION
     Dosage: QUANTITY:60 GRAM (?);OTHER ROUTE:ON SKIN?
     Dates: start: 20170620, end: 20170627

REACTIONS (2)
  - Application site rash [None]
  - Application site pain [None]

NARRATIVE: CASE EVENT DATE: 20170613
